FAERS Safety Report 25771664 (Version 1)
Quarter: 2025Q3

REPORT INFORMATION
  Report Type: Spontaneous
  Country: US (occurrence: US)
  Receive Date: 20250908
  Receipt Date: 20250908
  Transmission Date: 20251020
  Serious: No
  Sender: DOMPE FARMACEUTICI
  Company Number: US-FARMAPROD-202505-1541

PATIENT
  Age: 65 Year
  Sex: Female
  Weight: 58.97 kg

DRUGS (9)
  1. OXERVATE [Suspect]
     Active Substance: CENEGERMIN-BKBJ
     Indication: Neurotrophic keratopathy
     Route: 047
     Dates: start: 20250503
  2. OXERVATE [Suspect]
     Active Substance: CENEGERMIN-BKBJ
  3. NP THYROID [Concomitant]
     Active Substance: LEVOTHYROXINE\LIOTHYRONINE
  4. ZOLOFT [Concomitant]
     Active Substance: SERTRALINE HYDROCHLORIDE
  5. ZYRTEC [Concomitant]
     Active Substance: CETIRIZINE HYDROCHLORIDE
  6. PRILOSEC OTC [Concomitant]
     Active Substance: OMEPRAZOLE MAGNESIUM
  7. OFLOXACIN [Concomitant]
     Active Substance: OFLOXACIN
  8. REFRESH TEARS PF [Concomitant]
     Active Substance: CARBOXYMETHYLCELLULOSE SODIUM\GLYCERIN
  9. SYSTANE COMPLETE PF [Concomitant]
     Active Substance: PROPYLENE GLYCOL

REACTIONS (6)
  - Pyrexia [Unknown]
  - Chills [Unknown]
  - Eye pain [Unknown]
  - Headache [Unknown]
  - Eye swelling [Unknown]
  - Drug hypersensitivity [Unknown]

NARRATIVE: CASE EVENT DATE: 20250503
